FAERS Safety Report 6551136-0 (Version None)
Quarter: 2010Q1

REPORT INFORMATION
  Report Type: 
  Country: None (occurrence: None)
  Receive Date: 20100125
  Receipt Date: 20100114
  Transmission Date: 20100710
  Serious: Yes (Hospitalization)
  Sender: FDA-Public Use
  Company Number: KR-GILEAD-E2B_00000550

PATIENT
  Age: 48 Year
  Sex: Male
  Weight: 65.9 kg

DRUGS (8)
  1. HEPSERA [Suspect]
     Indication: HEPATITIS B
     Dosage: 10MG PER DAY
     Route: 048
     Dates: start: 20060616
  2. VITAMIN B COMPLEX CAP [Concomitant]
     Dates: start: 20060616
  3. ACSORBIC ACID [Concomitant]
     Dates: start: 20060616
  4. AMLODIPINE [Concomitant]
     Dates: start: 20060616
  5. URSODEOXYCHOLIC ACID [Concomitant]
     Indication: PROPHYLAXIS
     Dates: start: 20060616, end: 20060830
  6. LAMIVUDINE [Concomitant]
     Dates: start: 20050501
  7. MEPERIDINE HCL [Concomitant]
     Dates: start: 20060907, end: 20060907
  8. ACETAMINOPHEN [Concomitant]
     Dates: start: 20060908, end: 20060908

REACTIONS (1)
  - HEPATIC NEOPLASM MALIGNANT RECURRENT [None]
